FAERS Safety Report 19037217 (Version 1)
Quarter: 2021Q1

REPORT INFORMATION
  Report Type: Other
  Country: US (occurrence: US)
  Receive Date: 20210322
  Receipt Date: 20210322
  Transmission Date: 20210420
  Serious: Yes (Death, Hospitalization)
  Sender: FDA-Public Use
  Company Number: US-ROCHE-2794083

PATIENT
  Age: 75 Year
  Sex: Male

DRUGS (11)
  1. CYCLOPHOSPHAMIDE. [Suspect]
     Active Substance: CYCLOPHOSPHAMIDE
     Indication: DIFFUSE LARGE B-CELL LYMPHOMA
     Route: 065
  2. DOXORUBICIN [Suspect]
     Active Substance: DOXORUBICIN
     Indication: DIFFUSE LARGE B-CELL LYMPHOMA
     Route: 065
  3. VINCRISTINE [Suspect]
     Active Substance: VINCRISTINE
     Indication: DIFFUSE LARGE B-CELL LYMPHOMA
     Route: 065
  4. PREDNISONE. [Suspect]
     Active Substance: PREDNISONE
     Dosage: SIXTH CYCLE
     Route: 065
     Dates: start: 20201209
  5. RITUXIMAB. [Suspect]
     Active Substance: RITUXIMAB
     Indication: DIFFUSE LARGE B-CELL LYMPHOMA
     Route: 065
  6. CYCLOPHOSPHAMIDE. [Suspect]
     Active Substance: CYCLOPHOSPHAMIDE
     Dosage: SIXTH CYCLE
     Route: 065
     Dates: start: 20201209
  7. PREDNISONE. [Suspect]
     Active Substance: PREDNISONE
     Indication: DIFFUSE LARGE B-CELL LYMPHOMA
     Route: 065
  8. RITUXIMAB. [Suspect]
     Active Substance: RITUXIMAB
     Dosage: SIXTH CYCLE
     Route: 065
     Dates: start: 20201209
  9. VINCRISTINE [Suspect]
     Active Substance: VINCRISTINE
     Dosage: SIXTH CYCLE
     Route: 065
     Dates: start: 20201209
  10. METHOTREXATE. [Concomitant]
     Active Substance: METHOTREXATE
     Route: 037
  11. DOXORUBICIN [Suspect]
     Active Substance: DOXORUBICIN
     Dosage: SIXTH CYCLE
     Route: 065
     Dates: start: 20201209

REACTIONS (3)
  - Cerebrovascular accident [Unknown]
  - Respiratory failure [Fatal]
  - COVID-19 pneumonia [Unknown]

NARRATIVE: CASE EVENT DATE: 20201230
